FAERS Safety Report 17585811 (Version 1)
Quarter: 2020Q1

REPORT INFORMATION
  Report Type: Report from Study
  Country: US (occurrence: US)
  Receive Date: 20200326
  Receipt Date: 20200326
  Transmission Date: 20200409
  Serious: Yes (Other)
  Sender: FDA-Public Use
  Company Number: US-B.I. PHARMACEUTICALS,INC./RIDGEFIELD-2016-BI-37883BP

PATIENT
  Sex: Female

DRUGS (2)
  1. OFEV [Suspect]
     Active Substance: NINTEDANIB
     Indication: IDIOPATHIC PULMONARY FIBROSIS
     Route: 048
     Dates: start: 20160429
  2. AMLODIPINE [Concomitant]
     Active Substance: AMLODIPINE BESYLATE
     Indication: PRODUCT USED FOR UNKNOWN INDICATION
     Route: 065

REACTIONS (9)
  - Productive cough [Unknown]
  - Thrombosis [Recovered/Resolved]
  - Throat irritation [Unknown]
  - Gastric disorder [Recovered/Resolved]
  - Malaise [Unknown]
  - Dyspepsia [Unknown]
  - Infection [Unknown]
  - Diarrhoea [Unknown]
  - Dyspnoea exertional [Unknown]
